FAERS Safety Report 19392664 (Version 2)
Quarter: 2021Q2

REPORT INFORMATION
  Report Type: Spontaneous
  Country: SE (occurrence: SE)
  Receive Date: 20210609
  Receipt Date: 20210629
  Transmission Date: 20210717
  Serious: Yes (Other)
  Sender: FDA-Public Use
  Company Number: SE-SA-2021SA188337

PATIENT
  Age: 62 Year
  Sex: Male

DRUGS (1)
  1. DUPIXENT [Suspect]
     Active Substance: DUPILUMAB
     Indication: DERMATITIS ATOPIC
     Dosage: 300 MG, QOW
     Dates: start: 20190925, end: 20201117

REACTIONS (2)
  - Herpes ophthalmic [Not Recovered/Not Resolved]
  - Infection reactivation [Not Recovered/Not Resolved]

NARRATIVE: CASE EVENT DATE: 201911
